FAERS Safety Report 17516413 (Version 5)
Quarter: 2020Q4

REPORT INFORMATION
  Report Type: Spontaneous
  Country: US (occurrence: US)
  Receive Date: 20200309
  Receipt Date: 20201002
  Transmission Date: 20210113
  Serious: Yes (Other)
  Sender: FDA-Public Use
  Company Number: US-PFIZER INC-2020101524

PATIENT
  Age: 53 Year
  Sex: Female

DRUGS (2)
  1. METHOTREXATE. [Concomitant]
     Active Substance: METHOTREXATE
     Dosage: UNK
  2. XELJANZ [Suspect]
     Active Substance: TOFACITINIB CITRATE
     Indication: RHEUMATOID ARTHRITIS
     Dosage: 5 MG, 2X/DAY
     Route: 048
     Dates: start: 201908

REACTIONS (26)
  - Renal haemorrhage [Unknown]
  - Urinary bladder haemorrhage [Unknown]
  - Finger deformity [Unknown]
  - Joint warmth [Unknown]
  - Cough [Unknown]
  - Urethral injury [Unknown]
  - Anaemia [Unknown]
  - Musculoskeletal stiffness [Unknown]
  - Joint range of motion decreased [Unknown]
  - Constipation [Unknown]
  - Dehydration [Unknown]
  - Condition aggravated [Unknown]
  - Depression [Unknown]
  - Haemorrhage urinary tract [Recovering/Resolving]
  - Nodule [Unknown]
  - Urinary tract infection [Unknown]
  - Blood test abnormal [Unknown]
  - Arthralgia [Unknown]
  - Joint swelling [Unknown]
  - Back pain [Unknown]
  - Dyspnoea [Unknown]
  - Nephrolithiasis [Not Recovered/Not Resolved]
  - Urinary tract obstruction [Unknown]
  - Pain in extremity [Unknown]
  - Fibromyalgia [Unknown]
  - Asthenia [Unknown]

NARRATIVE: CASE EVENT DATE: 2020
